FAERS Safety Report 18927216 (Version 1)
Quarter: 2021Q1

REPORT INFORMATION
  Report Type: Spontaneous
  Country: US (occurrence: US)
  Receive Date: 20210222
  Receipt Date: 20210222
  Transmission Date: 20210420
  Serious: Yes (Other)
  Sender: FDA-Public Use
  Company Number: None

PATIENT
  Age: 82 Year
  Sex: Male

DRUGS (9)
  1. QUINAPRIL 40 MG [Concomitant]
     Dates: start: 20210125
  2. METOPROLOL 25 MG [Concomitant]
     Active Substance: METOPROLOL
     Dates: start: 20210125
  3. DUPIXENT [Suspect]
     Active Substance: DUPILUMAB
     Dosage: ?          OTHER FREQUENCY:EVERY WEEK;?
     Route: 058
  4. OMEPRAZOLE 20 MG [Concomitant]
     Active Substance: OMEPRAZOLE
     Dates: start: 20201017
  5. AMLODIPINE 2.5 MG [Concomitant]
     Active Substance: AMLODIPINE BESYLATE
     Dates: start: 20200702
  6. ATORVASTATIN 10MG [Concomitant]
     Active Substance: ATORVASTATIN
     Dates: start: 20200921
  7. ALLOPURINOL 300 MG [Concomitant]
     Active Substance: ALLOPURINOL
     Dates: start: 20210125
  8. CLOPIDOGREL [Concomitant]
     Active Substance: CLOPIDOGREL BISULFATE
     Dates: start: 20200924
  9. ALLOPURINOL 300 MG [Concomitant]
     Active Substance: ALLOPURINOL
     Dates: start: 20200713

REACTIONS (1)
  - Pruritus [None]
